FAERS Safety Report 17862408 (Version 1)
Quarter: 2020Q2

REPORT INFORMATION
  Report Type: Spontaneous
  Country: US (occurrence: US)
  Receive Date: 20200604
  Receipt Date: 20200604
  Transmission Date: 20200714
  Serious: No
  Sender: FDA-Public Use
  Company Number: US-ELI_LILLY_AND_COMPANY-US202005010297

PATIENT
  Age: 56 Year
  Sex: Female

DRUGS (1)
  1. EMGALITY [Suspect]
     Active Substance: GALCANEZUMAB-GNLM
     Indication: MIGRAINE PROPHYLAXIS
     Dosage: 1 DOSAGE FORM, UNKNOWN
     Route: 065
     Dates: start: 202002

REACTIONS (6)
  - Tinnitus [Unknown]
  - Dizziness [Unknown]
  - Malaise [Unknown]
  - Migraine [Unknown]
  - Product dose omission [Unknown]
  - Tremor [Unknown]

NARRATIVE: CASE EVENT DATE: 202002
